FAERS Safety Report 6877500-8 (Version None)
Quarter: 2010Q3

REPORT INFORMATION
  Report Type: 
  Country: None (occurrence: None)
  Receive Date: 20100727
  Receipt Date: 20091209
  Transmission Date: 20110219
  Serious: No
  Sender: FDA-Public Use
  Company Number: US-ABBOTT-09P-163-0609293-00

PATIENT
  Sex: Female
  Weight: 80.812 kg

DRUGS (3)
  1. SYNTHROID [Suspect]
     Indication: PRODUCT USED FOR UNKNOWN INDICATION
     Dosage: 50 FEW DAYS FELT MORE SLUGGISH, DIFFICULTY SLEEPING
     Route: 048
     Dates: start: 19860101, end: 20091114
  2. SYNTHROID [Suspect]
     Route: 048
     Dates: start: 20091115
  3. XANAX [Concomitant]
     Indication: ANXIETY

REACTIONS (9)
  - AGORAPHOBIA [None]
  - ANXIETY [None]
  - DEPRESSION [None]
  - EXTRASYSTOLES [None]
  - INCORRECT DOSE ADMINISTERED [None]
  - PANIC ATTACK [None]
  - SLUGGISHNESS [None]
  - WEIGHT INCREASED [None]
  - WRONG TECHNIQUE IN DRUG USAGE PROCESS [None]
